FAERS Safety Report 6660658 (Version 2)
Quarter: 2019Q1

REPORT INFORMATION
  Report Type: Spontaneous
  Country: GB (occurrence: GB)
  Receive Date: 20080609
  Receipt Date: 20190311
  Transmission Date: 20190418
  Serious: Yes (Other)
  Sender: FDA-Public Use
  Company Number: GB-PFIZER INC-2008046800

PATIENT
  Age: 26 Year
  Sex: Male
  Weight: 93 kg

DRUGS (1)
  1. CHAMPIX [Suspect]
     Active Substance: VARENICLINE TARTRATE
     Route: 048
     Dates: start: 20080318, end: 20080416

REACTIONS (4)
  - Mood altered [Not Recovered/Not Resolved]
  - Irritability [Not Recovered/Not Resolved]
  - Depression [Not Recovered/Not Resolved]
  - Paranoia [Not Recovered/Not Resolved]

NARRATIVE: CASE EVENT DATE: 200804
